FAERS Safety Report 15810450 (Version 1)
Quarter: 2019Q1

REPORT INFORMATION
  Report Type: Spontaneous
  Country: US (occurrence: US)
  Receive Date: 20190111
  Receipt Date: 20190111
  Transmission Date: 20190417
  Serious: Yes (Other)
  Sender: FDA-Public Use
  Company Number: US-ROCHE-2063790

PATIENT
  Sex: Male

DRUGS (3)
  1. RITUXAN [Suspect]
     Active Substance: RITUXIMAB
     Indication: PRODUCT USED FOR UNKNOWN INDICATION
     Route: 042
  2. RITUXAN [Suspect]
     Active Substance: RITUXIMAB
     Route: 042
  3. RITUXAN [Suspect]
     Active Substance: RITUXIMAB
     Dosage: 3*100 MG VIAL
     Route: 042

REACTIONS (4)
  - Dyspnoea [Unknown]
  - Chest discomfort [Unknown]
  - Erythema [Unknown]
  - Chills [Unknown]
